FAERS Safety Report 11101971 (Version 2)
Quarter: 2016Q4

REPORT INFORMATION
  Report Type: Report from Study
  Country: US (occurrence: US)
  Receive Date: 20150510
  Receipt Date: 20161113
  Transmission Date: 20170206
  Serious: No
  Sender: FDA-Public Use
  Company Number: US-AMGEN-USASP2015044420

PATIENT
  Age: 62 Year
  Sex: Female

DRUGS (1)
  1. ENBREL [Suspect]
     Active Substance: ETANERCEPT
     Indication: RHEUMATOID ARTHRITIS
     Dosage: 50 MG, QWK
     Route: 065
     Dates: start: 20040202, end: 2016

REACTIONS (4)
  - Exostosis [Not Recovered/Not Resolved]
  - Nodule [Not Recovered/Not Resolved]
  - Infection [Unknown]
  - Surgery [Unknown]

NARRATIVE: CASE EVENT DATE: 2014
